FAERS Safety Report 14739284 (Version 3)
Quarter: 2018Q3

REPORT INFORMATION
  Report Type: Report from Study
  Country: US (occurrence: US)
  Receive Date: 20180410
  Receipt Date: 20180711
  Transmission Date: 20181010
  Serious: Yes (Other)
  Sender: FDA-Public Use
  Company Number: US-AEGERION PHARMACEUTICAL, INC-AEGR003600

PATIENT
  Age: 60 Year
  Sex: Female
  Weight: 60.32 kg

DRUGS (2)
  1. RANEXA [Interacting]
     Active Substance: RANOLAZINE
     Indication: VENTRICULAR EXTRASYSTOLES
     Dosage: 500 MG, BID
  2. JUXTAPID [Suspect]
     Active Substance: LOMITAPIDE MESYLATE
     Indication: TYPE IIA HYPERLIPIDAEMIA
     Dosage: 5 MG, QD
     Route: 048
     Dates: start: 20130812

REACTIONS (7)
  - Visual impairment [Unknown]
  - Dizziness [Unknown]
  - Nausea [Not Recovered/Not Resolved]
  - Weight decreased [Unknown]
  - Drug interaction [Unknown]
  - Hypotension [Unknown]
  - Fall [Unknown]

NARRATIVE: CASE EVENT DATE: 201711
